FAERS Safety Report 5082764-X (Version None)
Quarter: 2006Q3

REPORT INFORMATION
  Report Type: 
  Country: None (occurrence: None)
  Receive Date: 20060814
  Receipt Date: 20060731
  Transmission Date: 20061208
  Serious: Yes (Hospitalization, Other)
  Sender: FDA-Public Use
  Company Number: 2004028820

PATIENT
  Age: 77 Year
  Sex: Female

DRUGS (10)
  1. DILANTIN KAPSEAL [Suspect]
     Indication: CONVULSION
     Dosage: 300 MG (1 IN 1 D), ORAL
     Route: 048
     Dates: start: 20000101
  2. ARICEPT [Suspect]
     Indication: AMNESIA
     Dates: start: 20040315, end: 20040401
  3. ACTONEL [Suspect]
     Indication: ILL-DEFINED DISORDER
  4. ALL OTHER THERAPEUTIC PRODUCTS (ALL OTHER THERAPEUTIC PRODUCTS) [Suspect]
     Indication: ILL-DEFINED DISORDER
  5. PHENYTOIN [Suspect]
     Indication: ILL-DEFINED DISORDER
     Dosage: 100 MG (100 MG, 1 IN 1 D), ORAL
     Route: 048
  6. ANTICOAGULANTS (ANTITHROMBOTIC AGENTS) [Suspect]
     Indication: ILL-DEFINED DISORDER
  7. LESCOL [Concomitant]
  8. CALCIUM WITH VITAMIN D (CALCIUM PHOSPHATE, CALCIUM SODIUM LACTATE, ERG [Concomitant]
  9. COUMADIN [Concomitant]
  10. ALL OTHER THERAPEUTIC PRODUCTS (ALL OTHER THERAPEUTIC PRODUCTS) [Concomitant]

REACTIONS (7)
  - ASTHENIA [None]
  - CORONARY ARTERY OCCLUSION [None]
  - DIZZINESS [None]
  - EMBOLISM [None]
  - FATIGUE [None]
  - LOWER RESPIRATORY TRACT INFECTION [None]
  - TRANSIENT ISCHAEMIC ATTACK [None]
